FAERS Safety Report 9580465 (Version 1)
Quarter: 2013Q4

REPORT INFORMATION
  Report Type: Spontaneous
  Country: ME (occurrence: ME)
  Receive Date: 20131002
  Receipt Date: 20131002
  Transmission Date: 20140711
  Serious: Yes (Death, Hospitalization)
  Sender: FDA-Public Use
  Company Number: ME-ROCHE-1282888

PATIENT
  Age: 55 Year
  Sex: Male
  Weight: 58 kg

DRUGS (3)
  1. MIRCERA [Suspect]
     Indication: NEPHROGENIC ANAEMIA
     Route: 042
     Dates: start: 201306, end: 201308
  2. PRESOLOL [Concomitant]
     Indication: PNEUMONIA
     Route: 048
  3. ASPIRIN [Concomitant]

REACTIONS (1)
  - Pneumonia [Fatal]
